FAERS Safety Report 9984728 (Version 1)
Quarter: 2014Q1

REPORT INFORMATION
  Report Type: Report from Study
  Country: US (occurrence: US)
  Receive Date: 20140304
  Receipt Date: 20140304
  Transmission Date: 20141002
  Serious: No
  Sender: FDA-Public Use
  Company Number: US-ABBVIE-13P-163-1075253-00

PATIENT
  Age: 34 Year
  Sex: Female

DRUGS (6)
  1. HUMIRA [Suspect]
     Indication: CROHN^S DISEASE
     Dates: start: 20121228
  2. RISPERIDONE [Concomitant]
     Indication: BIPOLAR DISORDER
  3. CELEXA [Concomitant]
     Indication: DEPRESSION
  4. AZATHIOPRINE [Concomitant]
     Indication: CROHN^S DISEASE
  5. TYLENOL [Concomitant]
     Indication: PAIN
  6. IBUPROFEN [Concomitant]
     Indication: PAIN

REACTIONS (1)
  - Malaise [Not Recovered/Not Resolved]
